FAERS Safety Report 5869827-3 (Version None)
Quarter: 2008Q3

REPORT INFORMATION
  Report Type: 
  Country: None (occurrence: None)
  Receive Date: 20080829
  Receipt Date: 20080818
  Transmission Date: 20090109
  Serious: Yes (Hospitalization, Disabling)
  Sender: FDA-Public Use
  Company Number: APP200800622

PATIENT
  Age: 68 Year
  Sex: Female
  Weight: 64.4108 kg

DRUGS (1)
  1. KANAMYCIN [Suspect]
     Indication: KNEE OPERATION
     Dosage: 3 GM, IN 1000 ML PERIOPERATIVELY, WOUND IRRIGATION
     Dates: start: 20040715, end: 20040715

REACTIONS (2)
  - DEAFNESS BILATERAL [None]
  - SYNCOPE [None]
